FAERS Safety Report 6128257-X (Version None)
Quarter: 2009Q1

REPORT INFORMATION
  Report Type: 
  Country: None (occurrence: None)
  Receive Date: 20090319
  Receipt Date: 20090304
  Transmission Date: 20090719
  Serious: Yes (Hospitalization)
  Sender: FDA-Public Use
  Company Number: 2008002675

PATIENT
  Age: 81 Year
  Sex: Female
  Weight: 49.6 kg

DRUGS (6)
  1. ERLOTINIB (ERLOTINIB) (TABLET) (ERLOTINIB) [Suspect]
     Indication: LUNG ADENOCARCINOMA
     Dosage: (100 MG, QD), ORAL
     Route: 048
     Dates: start: 20080616, end: 20090115
  2. PALGIN (PALGIN) [Concomitant]
  3. LANSOPRAZOLE [Concomitant]
  4. GASMOTIN (MOSAPRIDE CITRATE) [Concomitant]
  5. BETAMETHASONE [Concomitant]
  6. BIOFERMIN (BIOFERMIN) [Concomitant]

REACTIONS (5)
  - DIARRHOEA [None]
  - DRY SKIN [None]
  - DYSGEUSIA [None]
  - EATING DISORDER [None]
  - GENERAL PHYSICAL HEALTH DETERIORATION [None]
